FAERS Safety Report 10245201 (Version 2)
Quarter: 2014Q2

REPORT INFORMATION
  Report Type: Spontaneous
  Country: JP (occurrence: JP)
  Receive Date: 20140618
  Receipt Date: 20140630
  Transmission Date: 20141212
  Serious: Yes (Other)
  Sender: FDA-Public Use
  Company Number: JP-B.I. PHARMACEUTICALS,INC./RIDGEFIELD-2014-BI-27492NB

PATIENT
  Age: 83 Year
  Sex: Female
  Weight: 42.9 kg

DRUGS (7)
  1. TRAZENTA [Suspect]
     Indication: TYPE 2 DIABETES MELLITUS
     Dosage: 5 MG
     Route: 048
     Dates: start: 20140528, end: 20140606
  2. LANTUS [Suspect]
     Indication: TYPE 2 DIABETES MELLITUS
     Dosage: 17 U
     Route: 058
     Dates: start: 20140107
  3. WARFARIN [Concomitant]
     Indication: ATRIAL FIBRILLATION
     Dosage: 1.75 MG
     Route: 048
  4. DIGOSIN [Concomitant]
     Indication: ATRIAL FIBRILLATION
     Dosage: 0.125 MG
     Route: 048
  5. ALDACTONE A [Concomitant]
     Indication: CARDIAC FAILURE CONGESTIVE
     Dosage: 25 MG
     Route: 048
  6. ARTIST [Concomitant]
     Indication: ATRIAL FIBRILLATION
     Dosage: 5 MG
     Route: 048
  7. HALCION [Concomitant]
     Indication: INSOMNIA
     Dosage: 0.125 MG
     Route: 048

REACTIONS (1)
  - Cardiac failure congestive [Not Recovered/Not Resolved]
